FAERS Safety Report 4432495-1 (Version None)
Quarter: 2004Q3

REPORT INFORMATION
  Report Type: 
  Country: None (occurrence: None)
  Receive Date: 20040818
  Receipt Date: 20040805
  Transmission Date: 20050211
  Serious: Yes (Disabling, Other)
  Sender: FDA-Public Use
  Company Number: 2004-0007266

PATIENT
  Age: 3 Year
  Sex: Male
  Weight: 14.5151 kg

DRUGS (3)
  1. HEPSERA [Suspect]
     Indication: HEPATITIS B
     Dosage: 5 MG, 1 IN 1 D, ORAL;15 MG, 1 IN 1 D, ORAL;30 MG, 1 IN 1 D,ORAL
     Route: 048
     Dates: start: 20030607, end: 20040404
  2. HEPSERA [Suspect]
     Indication: HEPATITIS B
     Dosage: 5 MG, 1 IN 1 D, ORAL;15 MG, 1 IN 1 D, ORAL;30 MG, 1 IN 1 D,ORAL
     Route: 048
     Dates: start: 20040405, end: 20040411
  3. HEPSERA [Suspect]
     Indication: HEPATITIS B
     Dosage: 5 MG, 1 IN 1 D, ORAL;15 MG, 1 IN 1 D, ORAL;30 MG, 1 IN 1 D,ORAL
     Route: 048
     Dates: start: 20040412

REACTIONS (6)
  - COORDINATION ABNORMAL [None]
  - DIFFICULTY IN WALKING [None]
  - MOTOR DYSFUNCTION [None]
  - MUSCULAR WEAKNESS [None]
  - OVERDOSE [None]
  - SPINAL DISORDER [None]
